FAERS Safety Report 4613173-2 (Version None)
Quarter: 2005Q1

REPORT INFORMATION
  Report Type: 
  Country: None (occurrence: None)
  Receive Date: 20050316
  Receipt Date: 20050305
  Transmission Date: 20050727
  Serious: Yes (Life-Threatening, Hospitalization, Other)
  Sender: FDA-Public Use
  Company Number: 2005023574

PATIENT
  Sex: Male

DRUGS (5)
  1. CELEBREX [Suspect]
     Indication: BACK PAIN
     Dosage: 400 MG (200 MG, 2 IN 1 D)
     Dates: start: 20030101, end: 20040801
  2. VENLAFAXINE HCL [Suspect]
     Indication: MAJOR DEPRESSION
     Dosage: 150 MG (150 MG, 1 IN 1 D)
     Dates: start: 20030101
  3. ESOMEPRAZOLE (ESOMEPRAZOLE) [Concomitant]
  4. ZALEPLON (ZALEPLON) [Concomitant]
  5. VENLAFAXINE HCL [Concomitant]

REACTIONS (2)
  - MYOCARDIAL INFARCTION [None]
  - SLEEP DISORDER [None]
